FAERS Safety Report 6159031-6 (Version None)
Quarter: 2009Q2

REPORT INFORMATION
  Report Type: 
  Country: None (occurrence: None)
  Receive Date: 20090417
  Receipt Date: 20090407
  Transmission Date: 20091009
  Serious: Yes (Hospitalization, Other)
  Sender: FDA-Public Use
  Company Number: FR-PFIZER INC-2009194321

PATIENT

DRUGS (9)
  1. XANAX [Suspect]
     Dosage: UNK
     Route: 048
  2. MEDIATOR [Suspect]
     Indication: DIABETES MELLITUS
     Dosage: 3 DF, 1X/DAY
     Route: 048
     Dates: start: 20030101, end: 20060101
  3. TRIATEC [Suspect]
     Indication: CARDIAC FAILURE
     Route: 048
  4. LASIX [Suspect]
     Route: 048
  5. FORADIL [Suspect]
     Route: 048
  6. PAROXETINE [Suspect]
     Indication: DEPRESSION
     Dosage: UNK
     Route: 048
     Dates: start: 20050101, end: 20070101
  7. DI-ANTALVIC [Suspect]
     Route: 048
  8. DIFFU K [Suspect]
     Route: 048
  9. LEVOTHYROXINE SODIUM [Suspect]
     Route: 048

REACTIONS (3)
  - EJECTION FRACTION DECREASED [None]
  - MITRAL VALVE INCOMPETENCE [None]
  - PULMONARY ARTERIAL HYPERTENSION [None]
